FAERS Safety Report 7295315-6 (Version None)
Quarter: 2011Q1

REPORT INFORMATION
  Report Type: 
  Country: None (occurrence: None)
  Receive Date: 20110211
  Receipt Date: 20110211
  Transmission Date: 20110831
  Serious: Yes (Death)
  Sender: FDA-Public Use
  Company Number: None

PATIENT
  Age: 39 Year
  Sex: Female
  Weight: 68.9467 kg

DRUGS (1)
  1. MEGESTROL ACETATE [Suspect]
     Indication: TREATMENT NONCOMPLIANCE
     Dosage: 800MG DAILY PO
     Route: 048
     Dates: start: 20101004, end: 20101103

REACTIONS (2)
  - FALL [None]
  - PULMONARY EMBOLISM [None]
